FAERS Safety Report 25899970 (Version 2)
Quarter: 2025Q4

REPORT INFORMATION
  Report Type: Spontaneous
  Country: US (occurrence: US)
  Receive Date: 20251009
  Receipt Date: 20251106
  Transmission Date: 20260118
  Serious: Yes (Life-Threatening, Hospitalization)
  Sender: TEVA
  Company Number: US-TEVA-VS-3377886

PATIENT
  Age: 63 Year
  Sex: Female

DRUGS (11)
  1. IBUPROFEN [Suspect]
     Active Substance: IBUPROFEN
     Indication: Headache
     Route: 065
  2. EPINEPHRINE [Suspect]
     Active Substance: EPINEPHRINE
     Indication: Hypotension
     Route: 065
  3. SODIUM BICARBONATE [Suspect]
     Active Substance: SODIUM BICARBONATE
     Indication: Lactic acidosis
     Route: 065
  4. VASOPRESSIN [Suspect]
     Active Substance: VASOPRESSIN
     Indication: Hypotension
     Dosage: 0.04 UNITS AT A FIXED DOSE
     Route: 065
  5. NIMODIPINE [Interacting]
     Active Substance: NIMODIPINE
     Indication: Subarachnoid haemorrhage
     Route: 050
  6. VITAMIN B12 [Suspect]
     Active Substance: CYANOCOBALAMIN
     Indication: Vasoplegia syndrome
     Route: 065
  7. NOREPINEPHRINE [Suspect]
     Active Substance: NOREPINEPHRINE
     Indication: Hypotension
     Route: 065
  8. VANCOMYCIN [Concomitant]
     Active Substance: VANCOMYCIN
     Indication: Antibiotic therapy
     Route: 065
  9. PIPERACILLIN AND TAZOBACTAM [Concomitant]
     Active Substance: PIPERACILLIN SODIUM\TAZOBACTAM SODIUM
     Indication: Antibiotic therapy
     Route: 065
  10. DEVICE [Suspect]
     Active Substance: DEVICE
  11. DEVICE [Suspect]
     Active Substance: DEVICE

REACTIONS (6)
  - Drug ineffective [Unknown]
  - Chromaturia [Unknown]
  - Vasoplegia syndrome [Recovered/Resolved]
  - Drug-disease interaction [Unknown]
  - Adrenal insufficiency [Recovered/Resolved]
  - Lactic acidosis [Recovered/Resolved]
